FAERS Safety Report 9165463 (Version 2)
Quarter: 2013Q1

REPORT INFORMATION
  Report Type: Spontaneous
  Country: CA (occurrence: None)
  Receive Date: 20130228
  Receipt Date: 20130228
  Transmission Date: 20140127
  Serious: Yes (Hospitalization)
  Sender: FDA-Public Use
  Company Number: JPI-P-029931

PATIENT
  Age: 34 Year
  Sex: Male

DRUGS (3)
  1. XYREM [Suspect]
     Indication: CATAPLEXY
     Route: 048
     Dates: start: 20110223, end: 20110525
  2. NAPROXEN (TABLETS) [Concomitant]
  3. CELECOXIB (UNKNOWN) [Concomitant]

REACTIONS (3)
  - Adverse event [None]
  - Uvulopalatopharyngoplasty [None]
  - Tonsillectomy [None]
